FAERS Safety Report 12384833 (Version 1)
Quarter: 2016Q2

REPORT INFORMATION
  Report Type: Report from Study
  Country: BR (occurrence: BR)
  Receive Date: 20160519
  Receipt Date: 20160519
  Transmission Date: 20160815
  Serious: Yes (Other)
  Sender: FDA-Public Use
  Company Number: PHHY2016BR068045

PATIENT
  Sex: Female
  Weight: 115 kg

DRUGS (2)
  1. FORASEQ [Suspect]
     Active Substance: BUDESONIDE\FORMOTEROL FUMARATE
     Indication: PRODUCT USED FOR UNKNOWN INDICATION
     Dosage: UNK (FORMOTEROL FUMARATE 12 MCG, BUDESONIDE 400 MCG)
     Route: 055
  2. MIFLASONE [Suspect]
     Active Substance: BECLOMETHASONE DIPROPIONATE
     Indication: LUNG DISORDER
     Dosage: 200 MG, BID
     Route: 055
     Dates: start: 1999

REACTIONS (3)
  - Femur fracture [Recovered/Resolved with Sequelae]
  - Fall [Unknown]
  - Product use issue [Unknown]
